FAERS Safety Report 7786620-5 (Version None)
Quarter: 2011Q3

REPORT INFORMATION
  Report Type: 
  Country: None (occurrence: None)
  Receive Date: 20110929
  Receipt Date: 20110916
  Transmission Date: 20111222
  Serious: Yes (Disabling, Other)
  Sender: FDA-Public Use
  Company Number: GB-ELI_LILLY_AND_COMPANY-GB201109004781

PATIENT
  Age: 42 Year
  Sex: Female

DRUGS (1)
  1. OLANZAPINE [Suspect]

REACTIONS (6)
  - LOSS OF CONSCIOUSNESS [None]
  - CHEST PAIN [None]
  - APHASIA [None]
  - ABASIA [None]
  - SHOCK [None]
  - TREMOR [None]
